FAERS Safety Report 10077802 (Version 1)
Quarter: 2014Q2

REPORT INFORMATION
  Report Type: Spontaneous
  Country: JP (occurrence: JP)
  Receive Date: 20140414
  Receipt Date: 20140414
  Transmission Date: 20141212
  Serious: Yes (Other)
  Sender: FDA-Public Use
  Company Number: PHJP2014JP000696

PATIENT
  Age: 17 Year
  Sex: Male

DRUGS (8)
  1. CARBAMAZEPINE [Suspect]
     Dosage: 400 MG, DAILY
     Route: 048
  2. RISPERIDONE [Suspect]
     Indication: AUTISM
  3. RISPERIDONE [Suspect]
     Indication: COGNITIVE DISORDER
  4. ARIPIPRAZOLE [Suspect]
  5. TRIHEXYPHENIDYL [Suspect]
  6. L-DOPA [Suspect]
  7. QUETIAPINE [Concomitant]
     Dosage: UNK UKN, UNK
     Route: 048
  8. QUETIAPINE [Concomitant]
     Dosage: 300 MG, UNK
     Route: 048

REACTIONS (13)
  - Abulia [Unknown]
  - Bradykinesia [Unknown]
  - Sedation [Unknown]
  - Dystonia [Recovered/Resolved]
  - Psychiatric symptom [Recovering/Resolving]
  - Condition aggravated [Unknown]
  - Extrapyramidal disorder [Recovering/Resolving]
  - Agitation [Recovering/Resolving]
  - Logorrhoea [Recovering/Resolving]
  - Insomnia [Recovering/Resolving]
  - Hyperkinesia [Recovering/Resolving]
  - Eating disorder [Unknown]
  - Drug ineffective [Unknown]
